FAERS Safety Report 12409220 (Version 1)
Quarter: 2016Q2

REPORT INFORMATION
  Report Type: Spontaneous
  Country: NO (occurrence: NO)
  Receive Date: 20160526
  Receipt Date: 20160526
  Transmission Date: 20160815
  Serious: Yes (Hospitalization)
  Sender: FDA-Public Use
  Company Number: NO-SA-2016SA097964

PATIENT
  Age: 48 Year
  Sex: Male

DRUGS (12)
  1. LEMTRADA [Suspect]
     Active Substance: ALEMTUZUMAB
     Indication: MULTIPLE SCLEROSIS
     Route: 041
     Dates: start: 20150225, end: 20150301
  2. VOLTAREN [Concomitant]
     Active Substance: DICLOFENAC SODIUM
     Indication: ANKYLOSING SPONDYLITIS
     Route: 048
  3. SOMAC [Concomitant]
     Active Substance: PANTOPRAZOLE SODIUM
     Route: 048
  4. MEROPENEM. [Concomitant]
     Active Substance: MEROPENEM
     Indication: INFECTION
     Route: 041
     Dates: start: 20160302
  5. ORUDIS [Concomitant]
     Active Substance: KETOPROFEN
     Indication: ARTHRALGIA
     Route: 061
  6. CEFOTAXIME [Concomitant]
     Active Substance: CEFOTAXIME SODIUM
     Indication: INFECTION
     Route: 041
     Dates: start: 20160226, end: 20160302
  7. FLAGYL [Concomitant]
     Active Substance: METRONIDAZOLE\METRONIDAZOLE HYDROCHLORIDE
     Indication: GASTROINTESTINAL DISORDER
     Route: 041
     Dates: start: 201602
  8. BIO-MAGNESIUM [Concomitant]
     Indication: RESTLESS LEGS SYNDROME
     Route: 048
  9. NASONEX [Concomitant]
     Active Substance: MOMETASONE FUROATE
     Route: 045
  10. ERYTHROMYCIN. [Concomitant]
     Active Substance: ERYTHROMYCIN
     Indication: INFECTION
     Route: 041
     Dates: start: 201602, end: 20160226
  11. TRAMADOL VITABALANS [Concomitant]
     Indication: PAIN
     Route: 048
  12. TESTOGEL [Concomitant]
     Active Substance: TESTOSTERONE
     Route: 061

REACTIONS (1)
  - Splenic infarction [Recovering/Resolving]

NARRATIVE: CASE EVENT DATE: 20160302
